FAERS Safety Report 15410623 (Version 1)
Quarter: 2018Q3

REPORT INFORMATION
  Report Type: Spontaneous
  Country: US (occurrence: US)
  Receive Date: 20180921
  Receipt Date: 20180921
  Transmission Date: 20181010
  Serious: No
  Sender: FDA-Public Use
  Company Number: US-ASTRAZENECA-2014SE92138

PATIENT
  Age: 585 Month
  Sex: Female
  Weight: 77.1 kg

DRUGS (4)
  1. LIVALO [Concomitant]
     Active Substance: PITAVASTATIN CALCIUM
     Indication: BLOOD CHOLESTEROL
  2. FARXIGA [Suspect]
     Active Substance: DAPAGLIFLOZIN PROPANEDIOL
     Indication: DIABETES MELLITUS
     Route: 048
  3. VITAMINS NOS [Concomitant]
     Active Substance: VITAMINS
  4. BYDUREON [Suspect]
     Active Substance: EXENATIDE
     Indication: TYPE 2 DIABETES MELLITUS
     Route: 058
     Dates: start: 201406

REACTIONS (3)
  - Vomiting [Unknown]
  - Dizziness [Unknown]
  - Blood cholesterol [Unknown]

NARRATIVE: CASE EVENT DATE: 201411
